FAERS Safety Report 7335731-7 (Version None)
Quarter: 2011Q1

REPORT INFORMATION
  Report Type: 
  Country: None (occurrence: None)
  Receive Date: 20110307
  Receipt Date: 20110228
  Transmission Date: 20110831
  Serious: Yes (Other)
  Sender: FDA-Public Use
  Company Number: B0703411A

PATIENT
  Age: 69 Year
  Sex: Male

DRUGS (3)
  1. URIEF [Concomitant]
     Route: 048
  2. XYZAL [Concomitant]
     Route: 048
     Dates: start: 20110226
  3. AVOLVE [Suspect]
     Indication: BENIGN PROSTATIC HYPERPLASIA
     Route: 048

REACTIONS (1)
  - LOSS OF CONSCIOUSNESS [None]
